FAERS Safety Report 9448901 (Version 1)
Quarter: 2013Q3

REPORT INFORMATION
  Report Type: Spontaneous
  Country: US (occurrence: US)
  Receive Date: 20130808
  Receipt Date: 20130808
  Transmission Date: 20140515
  Serious: No
  Sender: FDA-Public Use
  Company Number: US-BRISTOL-MYERS SQUIBB COMPANY-18966259

PATIENT
  Age: 57 Year
  Sex: Female

DRUGS (7)
  1. ABILIFY [Suspect]
     Indication: BIPOLAR DISORDER
     Dosage: INITIAL DOSE:2MG TWO WEEK AGO.?RESTARTED WITH 1 MG AND INCREASED TO 1 MG
     Dates: start: 200812
  2. LAMICTAL [Concomitant]
  3. ZOLOFT [Concomitant]
  4. PROMETRIUM [Concomitant]
  5. VIVELLE [Concomitant]
  6. SINGULAIR [Concomitant]
  7. BOTOX [Concomitant]
     Indication: MIGRAINE

REACTIONS (3)
  - Compulsive shopping [Unknown]
  - Nausea [Unknown]
  - Depression [Unknown]
